FAERS Safety Report 11988296 (Version 1)
Quarter: 2016Q1

REPORT INFORMATION
  Report Type: Spontaneous
  Country: US (occurrence: US)
  Receive Date: 20160202
  Receipt Date: 20160202
  Transmission Date: 20160526
  Serious: No
  Sender: FDA-Public Use
  Company Number: US-BAYER-2016-020438

PATIENT
  Age: 80 Year
  Sex: Female
  Weight: 56.69 kg

DRUGS (5)
  1. MIRALAX [Suspect]
     Active Substance: POLYETHYLENE GLYCOL 3350
     Indication: CONSTIPATION
     Dosage: 1 DF, QD
     Route: 048
     Dates: start: 2010, end: 2010
  2. PLAVIX [Concomitant]
     Active Substance: CLOPIDOGREL BISULFATE
  3. PROTONIX [Concomitant]
     Active Substance: PANTOPRAZOLE SODIUM
  4. IRON [Concomitant]
     Active Substance: IRON
  5. AVAPRO [Concomitant]
     Active Substance: IRBESARTAN

REACTIONS (1)
  - Product use issue [None]

NARRATIVE: CASE EVENT DATE: 2010
